FAERS Safety Report 17146694 (Version 1)
Quarter: 2019Q4

REPORT INFORMATION
  Report Type: Spontaneous
  Country: DE (occurrence: DE)
  Receive Date: 20191212
  Receipt Date: 20191212
  Transmission Date: 20200122
  Serious: Yes (Hospitalization)
  Sender: FDA-Public Use
  Company Number: DE-MYLANLABS-2019M1122106

PATIENT
  Age: 67 Year
  Sex: Male

DRUGS (16)
  1. FUROSEMID                          /00032601/ [Suspect]
     Active Substance: FUROSEMIDE
     Indication: PRODUCT USED FOR UNKNOWN INDICATION
     Dosage: 250 MILLIGRAM, BID, 1-1-0-0, TABLETTEN
     Route: 048
  2. CALCITRIOL. [Concomitant]
     Active Substance: CALCITRIOL
     Dosage: 0.25 MG, 2-0-0-0, KAPSELN
     Route: 048
  3. ADENURIC [Concomitant]
     Active Substance: FEBUXOSTAT
     Dosage: 80 MILLIGRAM, QD, 1-0-0-0, TABLETTEN
     Route: 048
  4. RIVAROXABAN [Concomitant]
     Active Substance: RIVAROXABAN
     Dosage: 15 MILLIGRAM, QD, 0-0-1-0, TABLETTEN
     Route: 048
  5. PANTOPRAZOL                        /01263201/ [Concomitant]
     Active Substance: PANTOPRAZOLE
     Dosage: 40 MILLIGRAM, QD, 1-0-0-0, TABLETTEN
     Route: 048
  6. HYDROCHLOROTHIAZID [Suspect]
     Active Substance: HYDROCHLOROTHIAZIDE
     Indication: PRODUCT USED FOR UNKNOWN INDICATION
     Dosage: 25 MILLIGRAM, QD, 1-0-0-0, TABLETTEN
     Route: 048
  7. INSULIN HUMAN [Concomitant]
     Active Substance: INSULIN HUMAN
     Dosage: NK IE, NACH BZ, INJEKTIONS-/INFUSIONSL?SUNG
     Route: 058
  8. METOPROLOL. [Concomitant]
     Active Substance: METOPROLOL
     Dosage: 47.5 MILLIGRAM, BID, 1-0-1-0, TABLETTEN
     Route: 048
  9. MAGNETRANS FORTE [Concomitant]
     Active Substance: MAGNESIUM OXIDE
     Dosage: 150 MILLIGRAM, BID, 1-0-1-0, KAPSELN
     Route: 048
  10. SITAGLIPTIN [Concomitant]
     Active Substance: SITAGLIPTIN
     Dosage: 25 MILLIGRAM, QD, 1-0-0-0, TABLETTEN
     Route: 048
  11. TILIDIN [Concomitant]
     Active Substance: NALOXONE HYDROCHLORIDE\TILIDINE HYDROCHLORIDE
     Dosage: 100|8 MG, 1-0-0-0, RETARD-TABLETTEN
     Route: 048
  12. VALSARTAN. [Suspect]
     Active Substance: VALSARTAN
     Indication: PRODUCT USED FOR UNKNOWN INDICATION
     Dosage: 80 MILLIGRAM, QD, 1-0-0-0, TABLETTEN
     Route: 048
  13. METAMIZOL                          /06276701/ [Concomitant]
     Active Substance: METAMIZOLE
     Dosage: 500 MG, BEDARF, TABLETTEN
     Route: 048
  14. ISOMONIT [Concomitant]
     Active Substance: ISOSORBIDE MONONITRATE
     Dosage: 50 MILLIGRAM, QD, 1-0-0-0, TABLETTEN
     Route: 048
  15. SPIRONOLACTON [Suspect]
     Active Substance: SPIRONOLACTONE
     Indication: PRODUCT USED FOR UNKNOWN INDICATION
     Dosage: 25 MILLIGRAM, QD, 1-0-0-0, TABLETTEN
     Route: 048
  16. PROCORALAN [Concomitant]
     Active Substance: IVABRADINE
     Dosage: 5 MILLIGRAM, BID, 1-0-1-0, TABLETTEN
     Route: 048

REACTIONS (3)
  - Product monitoring error [Unknown]
  - Visual impairment [Unknown]
  - Fatigue [Unknown]
